FAERS Safety Report 5246164-1 (Version None)
Quarter: 2007Q1

REPORT INFORMATION
  Report Type: 
  Country: None (occurrence: None)
  Receive Date: 20070220
  Receipt Date: 20070205
  Transmission Date: 20070707
  Serious: Yes (Other)
  Sender: FDA-Public Use
  Company Number: NALFR-07-0136

PATIENT
  Age: 76 Year
  Sex: Male

DRUGS (11)
  1. ROPIVACAINE (ROPIVACAINE HYDROCHLORIDE) [Suspect]
     Indication: ANALGESIC EFFECT
     Dosage: SEE IMAGE
  2. SUFENTANIL (SUFENTANIL) [Suspect]
     Indication: ANALGESIC EFFECT
     Dosage: SEE IMAGE
  3. SUFENTANIL (SUFENTANIL) [Suspect]
     Indication: INDUCTION OF ANAESTHESIA
     Dosage: SEE IMAGE
  4. LIDOCAINE WITH EPINEPHRINE (XYLOCAINE-EPINEPHRINE) [Concomitant]
  5. ETOMIDATE [Concomitant]
  6. PROPOFOL [Concomitant]
  7. ATRACURIUM BESYLATE [Concomitant]
  8. ISOFLURANE [Concomitant]
  9. EPHEDRINE SUL CAP [Concomitant]
  10. CRYSTALLOIDS (ELECTROLYTE SOLUTIONS) [Concomitant]
  11. HEPARIN CALCIUM [Concomitant]

REACTIONS (9)
  - AGITATION [None]
  - ANAESTHETIC COMPLICATION [None]
  - BRONCHIAL OBSTRUCTION [None]
  - CONUS MEDULLARIS SYNDROME [None]
  - HYPOTENSION [None]
  - MOTOR DYSFUNCTION [None]
  - RESPIRATORY DISTRESS [None]
  - SPINAL CORD ISCHAEMIA [None]
  - URINARY RETENTION POSTOPERATIVE [None]
